FAERS Safety Report 23714416 (Version 2)
Quarter: 2024Q2

REPORT INFORMATION
  Report Type: Report from Study
  Country: US (occurrence: US)
  Receive Date: 20240406
  Receipt Date: 20240611
  Transmission Date: 20240716
  Serious: Yes (Hospitalization, Other)
  Sender: FDA-Public Use
  Company Number: US-JAZZ PHARMACEUTICALS-2024-US-005535

PATIENT
  Sex: Male

DRUGS (2)
  1. EPIDIOLEX [Suspect]
     Active Substance: CANNABIDIOL
     Indication: Partial seizures
     Dosage: 2 MILLILITER, BID
     Route: 048
     Dates: start: 202308
  2. EPIDIOLEX [Suspect]
     Active Substance: CANNABIDIOL
     Dosage: UNK
     Dates: start: 20230726, end: 20240301

REACTIONS (10)
  - Renal failure [Not Recovered/Not Resolved]
  - Decreased appetite [Not Recovered/Not Resolved]
  - Coma [Unknown]
  - Diarrhoea [Unknown]
  - Somnolence [Unknown]
  - Pyrexia [Unknown]
  - Fatigue [Unknown]
  - Insomnia [Unknown]
  - Vomiting [Unknown]
  - Off label use [Unknown]
